FAERS Safety Report 17854976 (Version 1)
Quarter: 2020Q2

REPORT INFORMATION
  Report Type: Spontaneous
  Country: FR (occurrence: FR)
  Receive Date: 20200603
  Receipt Date: 20200603
  Transmission Date: 20200714
  Serious: Yes (Life-Threatening)
  Sender: FDA-Public Use
  Company Number: FR-ACCORD-183631

PATIENT
  Age: 44 Year
  Sex: Male
  Weight: 86 kg

DRUGS (7)
  1. BACLOFEN. [Suspect]
     Active Substance: BACLOFEN
     Route: 048
     Dates: start: 20200219, end: 20200219
  2. ZOPICLONE [Suspect]
     Active Substance: ZOPICLONE
     Route: 048
     Dates: start: 20200219, end: 20200219
  3. TERALITHE [Suspect]
     Active Substance: LITHIUM CARBONATE
     Dosage: STRENGTH: 400 MG
     Route: 048
     Dates: start: 20200219, end: 20200219
  4. QUETIAPINE. [Suspect]
     Active Substance: QUETIAPINE
     Route: 048
     Dates: start: 20200219, end: 20200219
  5. SERESTA [Suspect]
     Active Substance: OXAZEPAM
     Dosage: STRENGTH: 50 MG
     Route: 048
     Dates: start: 20200219, end: 20200219
  6. VENLAFAXINE/VENLAFAXINE HYDROCHLORIDE [Suspect]
     Active Substance: VENLAFAXINE HYDROCHLORIDE
     Route: 048
     Dates: start: 20200219, end: 20200219
  7. THERALENE [Suspect]
     Active Substance: TRIMEPRAZINE
     Dosage: STRENGTH: 5 MG
     Route: 048
     Dates: start: 20200219, end: 20200219

REACTIONS (5)
  - Oxygen saturation decreased [Recovered/Resolved]
  - Miosis [Recovered/Resolved]
  - Tachycardia [Recovered/Resolved]
  - Coma [Recovered/Resolved]
  - Poisoning deliberate [Unknown]

NARRATIVE: CASE EVENT DATE: 20200219
